FAERS Safety Report 8502743-7 (Version None)
Quarter: 2012Q3

REPORT INFORMATION
  Report Type: 
  Country: None (occurrence: None)
  Receive Date: 20120711
  Receipt Date: 20120704
  Transmission Date: 20120928
  Serious: Yes (Hospitalization)
  Sender: FDA-Public Use
  Company Number: JP-JNJFOC-20120703313

PATIENT
  Age: 41 Year
  Sex: Female
  Weight: 64 kg

DRUGS (2)
  1. TRASTUZUMAB [Suspect]
     Indication: BREAST CANCER STAGE I
     Dosage: TO BE ADMINISTERED A TOTAL OF 18 TIMES
     Route: 042
     Dates: start: 20090501
  2. DOXORUBICIN HCL [Suspect]
     Indication: BREAST CANCER STAGE I
     Dosage: EVERY 3 WEEKS; TOTAL OF 4 CYCLES
     Route: 042
     Dates: start: 20090201

REACTIONS (2)
  - CARDIAC FAILURE ACUTE [None]
  - OFF LABEL USE [None]
